FAERS Safety Report 7978503-2 (Version None)
Quarter: 2011Q4

REPORT INFORMATION
  Report Type: 
  Country: None (occurrence: None)
  Receive Date: 20111214
  Receipt Date: 20111205
  Transmission Date: 20120403
  Serious: Yes (Hospitalization)
  Sender: FDA-Public Use
  Company Number: IT-JNJFOC-20111202169

PATIENT
  Sex: Male

DRUGS (6)
  1. LUVION [Concomitant]
     Route: 065
  2. LEVOFLOXACIN [Suspect]
     Indication: URINARY TRACT INFECTION
     Route: 048
     Dates: start: 20111108, end: 20111109
  3. DIGOXIN [Concomitant]
     Route: 065
  4. PROTELOS [Suspect]
     Indication: OSTEOPOROSIS
     Route: 048
     Dates: start: 20090501, end: 20111111
  5. COUMADIN [Concomitant]
     Route: 065
  6. CARVEDILOL [Concomitant]
     Route: 065

REACTIONS (2)
  - DERMATITIS BULLOUS [None]
  - SKIN EXFOLIATION [None]
